FAERS Safety Report 17589728 (Version 1)
Quarter: 2020Q1

REPORT INFORMATION
  Report Type: Spontaneous
  Country: US (occurrence: US)
  Receive Date: 20200327
  Receipt Date: 20200327
  Transmission Date: 20200409
  Serious: No
  Sender: FDA-Public Use
  Company Number: US-ALLERGAN-1946805US

PATIENT
  Age: 44 Year
  Sex: Female

DRUGS (8)
  1. LEVOFLOXACIN. [Concomitant]
     Active Substance: LEVOFLOXACIN
     Indication: URINARY TRACT INFECTION
  2. BIOTIN [Concomitant]
     Active Substance: BIOTIN
     Dosage: UNK, QD
  3. LATISSE [Suspect]
     Active Substance: BIMATOPROST
     Indication: GROWTH OF EYELASHES
     Dosage: 2 GTT, QHS
     Route: 061
     Dates: start: 20190804, end: 201912
  4. ACYCLOVIR. [Concomitant]
     Active Substance: ACYCLOVIR
     Indication: ORAL HERPES
  5. ALPRAZOLAM. [Concomitant]
     Active Substance: ALPRAZOLAM
  6. KERATIN [Concomitant]
     Active Substance: KERATIN
     Dosage: UNK, QD
  7. VENLAFAXINE [Concomitant]
     Active Substance: VENLAFAXINE HYDROCHLORIDE
     Indication: DEPRESSION
  8. MAGNESIUM [Concomitant]
     Active Substance: MAGNESIUM
     Dosage: UNK, QD

REACTIONS (5)
  - Off label use [Unknown]
  - Swelling of eyelid [Recovered/Resolved]
  - Eyelids pruritus [Recovered/Resolved]
  - Eyelid skin dryness [Recovered/Resolved]
  - Drug ineffective [Unknown]

NARRATIVE: CASE EVENT DATE: 20190804
